FAERS Safety Report 8796790 (Version 3)
Quarter: 2013Q3

REPORT INFORMATION
  Report Type: Spontaneous
  Country: FR (occurrence: FR)
  Receive Date: 20120917
  Receipt Date: 20130708
  Transmission Date: 20140515
  Serious: Yes (Hospitalization)
  Sender: FDA-Public Use
  Company Number: FR-JNJFOC-20120904790

PATIENT
  Age: 76 Year
  Sex: Female

DRUGS (6)
  1. DUROGESIC [Suspect]
     Indication: PAIN
     Route: 062
     Dates: start: 201205
  2. NEXAVAR [Suspect]
     Indication: RENAL CANCER
     Route: 048
     Dates: start: 2009
  3. TAHOR [Concomitant]
     Indication: ISCHAEMIC STROKE
     Route: 048
     Dates: start: 201201
  4. KARDEGIC [Concomitant]
     Indication: ISCHAEMIC STROKE
     Route: 048
     Dates: start: 201201
  5. MICARDIS [Concomitant]
     Route: 065
  6. LEVOTHYROX [Concomitant]
     Route: 065

REACTIONS (1)
  - Psoriasis [Unknown]
